FAERS Safety Report 15689440 (Version 3)
Quarter: 2020Q3

REPORT INFORMATION
  Report Type: Report from Study
  Country: GB (occurrence: GB)
  Receive Date: 20181205
  Receipt Date: 20200721
  Transmission Date: 20201102
  Serious: Yes (Other)
  Sender: FDA-Public Use
  Company Number: GB-PFIZER INC-2018493443

PATIENT

DRUGS (3)
  1. CAPECITABINE. [Suspect]
     Active Substance: CAPECITABINE
     Indication: OESOPHAGEAL ADENOCARCINOMA
     Dosage: UNK, CYCLIC, (TWO 3?WEEK CYCLES)
  2. OXALIPLATIN. [Suspect]
     Active Substance: OXALIPLATIN
     Indication: OESOPHAGEAL ADENOCARCINOMA
     Dosage: UNK, CYCLIC, (TWO 3?WEEK CYCLES)
  3. AZD8931 [Suspect]
     Active Substance: SAPITINIB
     Indication: OESOPHAGEAL ADENOCARCINOMA
     Dosage: UNK UNK, CYCLIC, EIGHT 21?DAY CYCLES

REACTIONS (1)
  - Wound dehiscence [Unknown]
